FAERS Safety Report 5315639-9 (Version None)
Quarter: 2007Q2

REPORT INFORMATION
  Report Type: 
  Country: None (occurrence: None)
  Receive Date: 20070503
  Receipt Date: 20070430
  Transmission Date: 20071010
  Serious: Yes (Death, Hospitalization)
  Sender: FDA-Public Use
  Company Number: 2006UW23903

PATIENT
  Age: 28927 Day
  Sex: Male

DRUGS (13)
  1. SEROQUEL [Suspect]
     Indication: DEMENTIA
     Route: 048
     Dates: start: 20020612
  2. SEROQUEL [Suspect]
     Route: 048
     Dates: start: 20040614
  3. RISPERDAL [Concomitant]
     Dates: start: 20050520
  4. ZYPREXA [Concomitant]
     Dates: start: 20030101, end: 20050101
  5. LEXAPRO [Concomitant]
  6. XANAX [Concomitant]
  7. MARTAZOPINE [Concomitant]
  8. ARICEPT [Concomitant]
  9. CELEXA [Concomitant]
  10. AMBIEN [Concomitant]
  11. NAMENDA [Concomitant]
  12. REMINYL [Concomitant]
  13. REMERON [Concomitant]

REACTIONS (3)
  - CARDIAC FAILURE CONGESTIVE [None]
  - DEATH [None]
  - DIABETES MELLITUS [None]
